FAERS Safety Report 8936403 (Version 2)
Quarter: 2012Q4

REPORT INFORMATION
  Report Type: 
  Country: DE (occurrence: DE)
  Receive Date: 20121130
  Receipt Date: 20121221
  Transmission Date: 20130627
  Serious: Yes (Other)
  Sender: FDA-Public Use
  Company Number: DE-AMGEN-DEUSP2012074909

PATIENT
  Age: 64 Year
  Sex: Male
  Weight: 107 kg

DRUGS (2)
  1. XGEVA [Suspect]
     Indication: RENAL CELL CARCINOMA
     Dosage: 120 mg, UNK
     Dates: start: 20111006
  2. XGEVA [Suspect]
     Indication: METASTASES TO BONE

REACTIONS (1)
  - Hypocalcaemia [Recovered/Resolved]
